FAERS Safety Report 9800927 (Version 1)
Quarter: 2014Q1

REPORT INFORMATION
  Report Type: Report from Study
  Country: CA (occurrence: CA)
  Receive Date: 20140107
  Receipt Date: 20140107
  Transmission Date: 20141002
  Serious: Yes (Other)
  Sender: FDA-Public Use
  Company Number: CA-JNJFOC-20140100597

PATIENT
  Sex: Female
  Weight: 38 kg

DRUGS (2)
  1. REMICADE [Suspect]
     Indication: CROHN^S DISEASE
     Dosage: 2 HOURS INFUSION
     Route: 042
     Dates: start: 201210
  2. IMURAN [Concomitant]
     Route: 065

REACTIONS (1)
  - Thoracic outlet syndrome [Unknown]
